FAERS Safety Report 8687537 (Version 5)
Quarter: 2016Q2

REPORT INFORMATION
  Report Type: Spontaneous
  Country: US (occurrence: US)
  Receive Date: 20120727
  Receipt Date: 20160425
  Transmission Date: 20160815
  Serious: Yes (Hospitalization, Disabling, Other)
  Sender: FDA-Public Use
  Company Number: US-009507513-1207USA007179

PATIENT
  Sex: Female
  Weight: 59 kg

DRUGS (2)
  1. FOSAMAX [Suspect]
     Active Substance: ALENDRONATE SODIUM
     Indication: BREAST CANCER
     Dosage: UNK, UNKNOWN
     Route: 048
     Dates: start: 200311, end: 20100527
  2. FOSAMAX PLUS D [Suspect]
     Active Substance: ALENDRONATE SODIUM\CHOLECALCIFEROL
     Indication: BREAST CANCER
     Dosage: UNK
     Route: 048
     Dates: end: 201011

REACTIONS (7)
  - Osteopenia [Unknown]
  - Blood cholesterol increased [Unknown]
  - Femur fracture [Unknown]
  - Bone disorder [Unknown]
  - Off label use [Unknown]
  - Fall [Unknown]
  - Femur fracture [Recovering/Resolving]

NARRATIVE: CASE EVENT DATE: 20090324
